FAERS Safety Report 5206207-8 (Version None)
Quarter: 2006Q4

REPORT INFORMATION
  Report Type: 
  Country: None (occurrence: None)
  Receive Date: 20061026
  Receipt Date: 20060810
  Transmission Date: 20070319
  Serious: No
  Sender: FDA-Public Use
  Company Number: 2006049983

PATIENT
  Age: 65 Year
  Sex: Male
  Weight: 97.5234 kg

DRUGS (13)
  1. LYRICA [Suspect]
     Indication: BURNING SENSATION
     Dosage: 100 MG (50 MG, 2 IN 1 D); ORAL
     Route: 048
     Dates: start: 20060301
  2. LYRICA [Suspect]
     Indication: PAIN IN EXTREMITY
     Dosage: 100 MG (50 MG, 2 IN 1 D); ORAL
     Route: 048
     Dates: start: 20060301
  3. FENTANYL [Suspect]
     Indication: PAIN
     Dosage: (50 MCG, 1 IN 3 D); TRANSDERMAL
     Route: 062
  4. FOLIC ACID [Concomitant]
  5. PLAVIX [Concomitant]
  6. ACETYLSALICYLIC ACID [Concomitant]
  7. COREG [Concomitant]
  8. FUROSEMIDE [Concomitant]
  9. DIGOXIN [Concomitant]
  10. ENALAPRIL MALEATE [Concomitant]
  11. INSPRA [Concomitant]
  12. TRICOR [Concomitant]
  13. HYDROCODONE BITARTRATE [Concomitant]

REACTIONS (8)
  - DEPERSONALISATION [None]
  - DIZZINESS [None]
  - DRUG EFFECT DECREASED [None]
  - DRUG INEFFECTIVE [None]
  - DRUG WITHDRAWAL SYNDROME [None]
  - MEDICATION ERROR [None]
  - PAIN [None]
  - THINKING ABNORMAL [None]
